FAERS Safety Report 8913350 (Version 3)
Quarter: 2013Q1

REPORT INFORMATION
  Report Type: Spontaneous
  Country: GB (occurrence: GB)
  Receive Date: 20121116
  Receipt Date: 20130322
  Transmission Date: 20140127
  Serious: Yes (Death, Hospitalization, Other)
  Sender: FDA-Public Use
  Company Number: GB-009507513-1211GBR005867

PATIENT
  Age: 70 Year
  Sex: Female
  Weight: 82.6 kg

DRUGS (3)
  1. MIRTAZAPINE [Suspect]
     Indication: PRODUCT USED FOR UNKNOWN INDICATION
     Route: 048
  2. DIAZEPAM [Suspect]
     Indication: PRODUCT USED FOR UNKNOWN INDICATION
     Route: 065
  3. RISPERIDONE [Suspect]
     Indication: PRODUCT USED FOR UNKNOWN INDICATION
     Route: 065

REACTIONS (16)
  - Neuroleptic malignant syndrome [Fatal]
  - Catatonia [Not Recovered/Not Resolved]
  - Urinary tract infection [Not Recovered/Not Resolved]
  - Bedridden [Not Recovered/Not Resolved]
  - Cholecystitis [Not Recovered/Not Resolved]
  - Coma [Not Recovered/Not Resolved]
  - Dehydration [Not Recovered/Not Resolved]
  - Drug interaction [Not Recovered/Not Resolved]
  - Pyrexia [Not Recovered/Not Resolved]
  - Sedation [Not Recovered/Not Resolved]
  - Paralysis [Not Recovered/Not Resolved]
  - Muscle rigidity [Not Recovered/Not Resolved]
  - Local swelling [Not Recovered/Not Resolved]
  - Aphagia [Not Recovered/Not Resolved]
  - Fluid intake reduced [Not Recovered/Not Resolved]
  - Swelling face [Not Recovered/Not Resolved]
